FAERS Safety Report 15407900 (Version 6)
Quarter: 2019Q1

REPORT INFORMATION
  Report Type: Spontaneous
  Country: GB (occurrence: GB)
  Receive Date: 20180920
  Receipt Date: 20190207
  Transmission Date: 20190417
  Serious: Yes (Hospitalization)
  Sender: FDA-Public Use
  Company Number: GB-JNJFOC-20180910795

PATIENT
  Sex: Female
  Weight: 124 kg

DRUGS (1)
  1. SIMPONI [Suspect]
     Active Substance: GOLIMUMAB
     Indication: RHEUMATOID ARTHRITIS
     Route: 058

REACTIONS (5)
  - Injection site haemorrhage [Unknown]
  - Accidental exposure to product [Unknown]
  - Medication error [Unknown]
  - Kidney infection [Unknown]
  - Product dose omission [Unknown]

NARRATIVE: CASE EVENT DATE: 2018
